FAERS Safety Report 5441809-5 (Version None)
Quarter: 2007Q3

REPORT INFORMATION
  Report Type: 
  Country: None (occurrence: None)
  Receive Date: 20070830
  Receipt Date: 20070830
  Transmission Date: 20080115
  Serious: Yes (Disabling)
  Sender: FDA-Public Use
  Company Number: None

PATIENT
  Age: 64 Year
  Sex: Female
  Weight: 92 kg

DRUGS (3)
  1. LIPITOR [Suspect]
     Indication: HYPERLIPIDAEMIA
     Dosage: 20MG DAILY PO
     Route: 048
  2. ALLOPURINOL [Suspect]
     Dosage: 300MG DAILY PO
     Route: 048
  3. EFFEXOR [Concomitant]

REACTIONS (1)
  - HEPATITIS ACUTE [None]
